FAERS Safety Report 20427043 (Version 1)
Quarter: 2022Q1

REPORT INFORMATION
  Report Type: Spontaneous
  Country: JP (occurrence: JP)
  Receive Date: 20220204
  Receipt Date: 20220204
  Transmission Date: 20220423
  Serious: No
  Sender: FDA-Public Use
  Company Number: JP-TAKEDA-2021TJP123489

PATIENT
  Age: 7 Decade
  Sex: Male

DRUGS (5)
  1. CABOMETYX [Suspect]
     Active Substance: CABOZANTINIB S-MALATE
     Indication: Renal cancer metastatic
     Dosage: UNK
     Route: 048
  2. NIVOLUMAB [Concomitant]
     Active Substance: NIVOLUMAB
     Indication: Renal cancer metastatic
     Dosage: UNK
     Route: 065
  3. INTERFERON ALFA-2A OR INTERFERON ALFA-2B [Concomitant]
     Active Substance: INTERFERON ALFA-2A OR INTERFERON ALFA-2B
     Indication: Renal cancer metastatic
     Dosage: UNK
     Route: 065
  4. SUNITINIB MALATE [Concomitant]
     Active Substance: SUNITINIB MALATE
     Indication: Renal cancer metastatic
     Dosage: UNK
     Route: 065
  5. AXITINIB [Concomitant]
     Active Substance: AXITINIB
     Indication: Renal cancer metastatic
     Dosage: UNK
     Route: 065

REACTIONS (1)
  - Malaise [Unknown]
